FAERS Safety Report 23125249 (Version 1)
Quarter: 2023Q4

REPORT INFORMATION
  Report Type: Spontaneous
  Country: US (occurrence: US)
  Receive Date: 20231030
  Receipt Date: 20231030
  Transmission Date: 20240110
  Serious: Yes (Death, Hospitalization, Other)
  Sender: FDA-Public Use
  Company Number: US-SUN PHARMACEUTICAL INDUSTRIES LTD-2023R1-414814

PATIENT
  Age: 66 Year
  Sex: Female

DRUGS (2)
  1. DEXAMETHASONE [Suspect]
     Active Substance: DEXAMETHASONE
     Indication: Hypoxia
     Route: 065
  2. DEXAMETHASONE [Suspect]
     Active Substance: DEXAMETHASONE
     Indication: Pneumonia

REACTIONS (7)
  - Atrial fibrillation [Unknown]
  - Ventricular tachycardia [Unknown]
  - Hypoxia [Unknown]
  - Respiratory failure [Unknown]
  - Cryptococcosis [Unknown]
  - Condition aggravated [Fatal]
  - Shock [Unknown]
